FAERS Safety Report 10279060 (Version 2)
Quarter: 2014Q3

REPORT INFORMATION
  Report Type: Spontaneous
  Country: SI (occurrence: SI)
  Receive Date: 20140707
  Receipt Date: 20140707
  Transmission Date: 20150326
  Serious: Yes (Death)
  Sender: FDA-Public Use
  Company Number: SI-ROCHE-1316141

PATIENT
  Age: 34 Year
  Sex: Male

DRUGS (1)
  1. VEMURAFENIB [Suspect]
     Active Substance: VEMURAFENIB
     Indication: METASTATIC MALIGNANT MELANOMA
     Route: 065
     Dates: start: 20130621

REACTIONS (4)
  - Disease progression [Fatal]
  - Rash [Unknown]
  - Skin papilloma [Unknown]
  - Anal abscess [Unknown]

NARRATIVE: CASE EVENT DATE: 20131231
